FAERS Safety Report 8128987 (Version 2)
Quarter: 2012Q4

REPORT INFORMATION
  Report Type: Spontaneous
  Country: DE (occurrence: None)
  Receive Date: 20110829
  Receipt Date: 20120905
  Transmission Date: 20130627
  Serious: Yes (Other)
  Sender: FDA-Public Use
  Company Number: NGX_00580_2011

PATIENT
  Sex: Male
  Weight: 81 kg

DRUGS (4)
  1. QUTENZA [Suspect]
     Indication: NEUROPATHY PERIPHERAL
     Dosage: DF [PATCH, APPLIED TO THE FOOT]
     Route: 061
     Dates: start: 20110727, end: 20110727
  2. KVX, DRV/RTV [Concomitant]
  3. RAL [Concomitant]
  4. ALPHA LIPOIC ACID [Concomitant]

REACTIONS (2)
  - Asthma [None]
  - Application site pain [None]
